FAERS Safety Report 23545134 (Version 2)
Quarter: 2024Q1

REPORT INFORMATION
  Report Type: Spontaneous
  Country: US (occurrence: US)
  Receive Date: 20240220
  Receipt Date: 20240221
  Transmission Date: 20240410
  Serious: Yes (Other)
  Sender: FDA-Public Use
  Company Number: US-PFIZER INC-PV202400022348

PATIENT
  Age: 70 Year
  Sex: Male

DRUGS (1)
  1. CIBINQO [Suspect]
     Active Substance: ABROCITINIB
     Indication: Pruritus
     Dosage: 100 MG, 1X/DAY
     Route: 048

REACTIONS (3)
  - Diabetes mellitus [Unknown]
  - Drug ineffective for unapproved indication [Unknown]
  - Off label use [Unknown]
